FAERS Safety Report 16071378 (Version 4)
Quarter: 2019Q3

REPORT INFORMATION
  Report Type: Spontaneous
  Country: US (occurrence: US)
  Receive Date: 20190314
  Receipt Date: 20190725
  Transmission Date: 20191004
  Serious: No
  Sender: FDA-Public Use
  Company Number: US-PFIZER INC-2016596541

PATIENT
  Age: 72 Year
  Sex: Female
  Weight: 86 kg

DRUGS (14)
  1. CELEBREX [Suspect]
     Active Substance: CELECOXIB
     Indication: FIBROMYALGIA
  2. FAMOTIDINE. [Concomitant]
     Active Substance: FAMOTIDINE
     Dosage: UNK
  3. TRIAMCINOLONE ACETONIDE. [Concomitant]
     Active Substance: TRIAMCINOLONE ACETONIDE
     Dosage: UNK
  4. FLONASE [Suspect]
     Active Substance: FLUTICASONE PROPIONATE
     Dosage: UNK
     Route: 045
  5. LORATADINE. [Concomitant]
     Active Substance: LORATADINE
     Dosage: 10 MG, 1X/DAY
  6. NASACORT [Concomitant]
     Active Substance: TRIAMCINOLONE ACETONIDE
     Dosage: UNK
  7. TIZANIDINE. [Concomitant]
     Active Substance: TIZANIDINE
     Indication: MUSCLE RELAXANT THERAPY
  8. CELEBREX [Suspect]
     Active Substance: CELECOXIB
     Indication: OSTEOARTHRITIS
  9. TIZANIDINE. [Concomitant]
     Active Substance: TIZANIDINE
     Indication: FIBROMYALGIA
     Dosage: UNK, 1X/DAY (ONLY AT NIGHT ABOUT 5 MINUTES GOING TO BED)
  10. CELEBREX [Suspect]
     Active Substance: CELECOXIB
     Indication: BURSITIS
  11. CELEBREX [Suspect]
     Active Substance: CELECOXIB
     Indication: TENDONITIS
  12. FEXOFENADINE HCL [Concomitant]
     Active Substance: FEXOFENADINE HYDROCHLORIDE
     Dosage: UNK
  13. KIRKLAND SIGNATURE ALLERCLEAR [Concomitant]
     Active Substance: LORATADINE
     Dosage: UNK
  14. CELEBREX [Suspect]
     Active Substance: CELECOXIB
     Indication: ARTHRITIS
     Dosage: 200 MG (1 TABLET) , 1X/DAY
     Route: 048

REACTIONS (4)
  - Arthritis [Unknown]
  - Peripheral swelling [Recovered/Resolved]
  - Therapeutic product effect incomplete [Unknown]
  - Ligament sprain [Recovering/Resolving]
